FAERS Safety Report 11744387 (Version 4)
Quarter: 2016Q1

REPORT INFORMATION
  Report Type: Spontaneous
  Country: US (occurrence: US)
  Receive Date: 20151116
  Receipt Date: 20160128
  Transmission Date: 20160525
  Serious: Yes (Hospitalization, Other)
  Sender: FDA-Public Use
  Company Number: US-PFIZER INC-2015381938

PATIENT
  Age: 71 Year
  Sex: Male
  Weight: 98 kg

DRUGS (10)
  1. DILANTIN [Suspect]
     Active Substance: PHENYTOIN
     Indication: GENERALISED TONIC-CLONIC SEIZURE
     Dosage: 700 MG, DAILY
     Dates: start: 20151105
  2. VIMPAT [Concomitant]
     Active Substance: LACOSAMIDE
     Indication: PARTIAL SEIZURES
     Dosage: 150 MG, 2X/DAY
     Route: 048
  3. DILANTIN [Suspect]
     Active Substance: PHENYTOIN
     Dosage: 500 MG, DAILY (100 MG) 200 MG IN AM, (100) 300 MG IN PM)
  4. SIMVASTATIN. [Concomitant]
     Active Substance: SIMVASTATIN
     Indication: BLOOD CHOLESTEROL INCREASED
     Dosage: 80 MG, 1X/DAY, AT BEDTIME
     Route: 048
  5. DILANTIN [Suspect]
     Active Substance: PHENYTOIN
     Indication: SEIZURE
     Dosage: 500 MG, DAILY, 5 CAPSULES, THREE IN THE MORNING AND TWO AT NIGHT
     Route: 048
     Dates: start: 20110726
  6. DILANTIN [Suspect]
     Active Substance: PHENYTOIN
     Dosage: 600 MG, UNK
  7. DILANTIN [Suspect]
     Active Substance: PHENYTOIN
     Dosage: 530 MG, UNK(230 MG AM- 300 MG PM)
     Route: 048
  8. DILANTIN [Suspect]
     Active Substance: PHENYTOIN
     Dosage: 100 MG 2 TABS PLUS 30 MG (1) IN AM + 100 MG - 3 TABS AT BEDTIME
     Route: 048
  9. DITROPAN XL [Concomitant]
     Active Substance: OXYBUTYNIN CHLORIDE
     Indication: DYSURIA
     Dosage: 10 MG, 1X/DAY
     Route: 048
  10. LISINOPRIL HCTZ [Concomitant]
     Active Substance: HYDROCHLOROTHIAZIDE\LISINOPRIL
     Indication: BLOOD PRESSURE MEASUREMENT
     Dosage: 20MG/12.5MG, 1X/DAY
     Route: 048

REACTIONS (21)
  - Fall [Unknown]
  - Anticonvulsant drug level decreased [Unknown]
  - Depression [Recovering/Resolving]
  - Obstructive airways disorder [Recovering/Resolving]
  - Toxicity to various agents [Unknown]
  - Product quality issue [Unknown]
  - Fine motor skill dysfunction [Recovered/Resolved]
  - Productive cough [Unknown]
  - Confusional state [Recovering/Resolving]
  - Cellulitis [Recovering/Resolving]
  - Lung infection [Recovering/Resolving]
  - Aspiration [Recovering/Resolving]
  - Respiratory arrest [Unknown]
  - Pneumonia aspiration [Unknown]
  - Contusion [Unknown]
  - Generalised tonic-clonic seizure [Recovering/Resolving]
  - Dysarthria [Recovering/Resolving]
  - Fatigue [Unknown]
  - Musculoskeletal pain [Recovering/Resolving]
  - Asthenia [Unknown]
  - Hypoxia [Recovering/Resolving]

NARRATIVE: CASE EVENT DATE: 2014
